FAERS Safety Report 5312755-2 (Version None)
Quarter: 2007Q2

REPORT INFORMATION
  Report Type: 
  Country: None (occurrence: None)
  Receive Date: 20070430
  Receipt Date: 20070426
  Transmission Date: 20071010
  Serious: Yes (Death, Life-Threatening, Hospitalization)
  Sender: FDA-Public Use
  Company Number: JP-BRISTOL-MYERS SQUIBB COMPANY-13675392

PATIENT
  Age: 49 Year
  Sex: Male
  Weight: 79 kg

DRUGS (16)
  1. DASATINIB [Suspect]
     Indication: LEUKAEMIA
     Dosage: 140MG DAILY 08-DEC-06 TO 26-DEC-06, 100MG DAILY 12-JAN-2007 TO 12-JAN-07, RESTARTED 15-JAN-07
     Route: 048
     Dates: start: 20070115, end: 20070209
  2. LOXONIN [Concomitant]
     Indication: PYREXIA
     Route: 048
     Dates: start: 20061225, end: 20061226
  3. GAMIMUNE N 5% [Concomitant]
     Indication: PNEUMONIA
     Route: 042
     Dates: start: 20070210, end: 20070213
  4. MAXIPIME [Concomitant]
     Indication: PNEUMONIA
     Route: 042
     Dates: start: 20070109, end: 20070211
  5. MEROPEN [Concomitant]
     Indication: PNEUMONIA
     Route: 042
     Dates: start: 20070211, end: 20070217
  6. MINOCYCLINE HCL [Concomitant]
     Indication: PNEUMONIA
     Route: 042
     Dates: start: 20070210, end: 20070214
  7. FUNGUARD [Concomitant]
     Indication: PNEUMONIA
     Route: 042
     Dates: start: 20070210, end: 20070213
  8. VFEND [Concomitant]
     Indication: PNEUMONIA
     Route: 042
     Dates: start: 20070213, end: 20070217
  9. DENOSINE [Concomitant]
     Indication: PNEUMONIA
     Route: 042
     Dates: start: 20070212, end: 20070214
  10. PREDONINE [Concomitant]
     Indication: PYREXIA
     Route: 042
     Dates: start: 20070213, end: 20070215
  11. SOL MELCORT [Concomitant]
     Indication: PYREXIA
     Route: 042
     Dates: start: 20070215, end: 20070217
  12. SOL MELCORT [Concomitant]
     Indication: PNEUMONIA
     Route: 042
     Dates: start: 20070215, end: 20070217
  13. ELASPOL [Concomitant]
     Indication: PNEUMONIA
     Route: 042
     Dates: start: 20070216, end: 20070217
  14. ADONA [Concomitant]
     Indication: PULMONARY HAEMORRHAGE
     Route: 042
     Dates: start: 20070216, end: 20070217
  15. BAKTAR [Concomitant]
     Indication: PNEUMONIA
     Route: 048
     Dates: start: 20070213, end: 20070216
  16. TRANSAMIN [Concomitant]
     Indication: PULMONARY HAEMORRHAGE
     Route: 042
     Dates: start: 20070216, end: 20070217

REACTIONS (5)
  - DISSEMINATED INTRAVASCULAR COAGULATION [None]
  - HYPOXIA [None]
  - PNEUMONIA [None]
  - PULMONARY HAEMORRHAGE [None]
  - PYREXIA [None]
